APPROVED DRUG PRODUCT: ACITRETIN
Active Ingredient: ACITRETIN
Strength: 17.5MG
Dosage Form/Route: CAPSULE;ORAL
Application: A202552 | Product #002 | TE Code: AB
Applicant: IMPAX LABORATORIES INC
Approved: Dec 23, 2015 | RLD: No | RS: No | Type: RX